FAERS Safety Report 25218339 (Version 1)
Quarter: 2025Q2

REPORT INFORMATION
  Report Type: Report from Study
  Country: ZA (occurrence: ZA)
  Receive Date: 20250421
  Receipt Date: 20250421
  Transmission Date: 20250716
  Serious: Yes (Other)
  Sender: ROCHE
  Company Number: ZA-ROCHE-10000260696

PATIENT
  Sex: Female

DRUGS (1)
  1. OCREVUS [Suspect]
     Active Substance: OCRELIZUMAB
     Indication: Multiple sclerosis
     Dosage: THEREAFTER 600MG EVERY 6 MONTHS
     Route: 042

REACTIONS (1)
  - Cerebral palsy [Unknown]
